FAERS Safety Report 4970261-9 (Version None)
Quarter: 2006Q2

REPORT INFORMATION
  Report Type: 
  Country: None (occurrence: None)
  Receive Date: 20060412
  Receipt Date: 20060403
  Transmission Date: 20061013
  Serious: Yes (Other)
  Sender: FDA-Public Use
  Company Number: PHFR2006GB01334

PATIENT
  Age: 67 Year
  Sex: Female

DRUGS (4)
  1. ZOMETA [Suspect]
     Indication: MULTIPLE MYELOMA
     Dosage: 4 MG, QMO
     Route: 042
     Dates: start: 20020401, end: 20060301
  2. MELPHALAN [Concomitant]
     Indication: CHEMOTHERAPY
     Dosage: 10MG/DAY
     Route: 048
     Dates: start: 20060201
  3. RANITIDINE [Concomitant]
     Dosage: 150 MG, BID
     Route: 048
  4. FENTANYL [Concomitant]
     Dosage: 250 UG, QOD
     Route: 062

REACTIONS (1)
  - OSTEONECROSIS [None]
